FAERS Safety Report 23782993 (Version 1)
Quarter: 2024Q2

REPORT INFORMATION
  Report Type: Spontaneous
  Country: US (occurrence: US)
  Receive Date: 20240425
  Receipt Date: 20240425
  Transmission Date: 20240715
  Serious: Yes (Hospitalization)
  Sender: FDA-Public Use
  Company Number: US-MYLANLABS-2024M1037306

PATIENT
  Age: 18 Year
  Sex: Female

DRUGS (14)
  1. DEXAMETHASONE [Suspect]
     Active Substance: DEXAMETHASONE
     Indication: B-cell type acute leukaemia
     Dosage: UNK
     Route: 065
  2. METHOTREXATE [Suspect]
     Active Substance: METHOTREXATE
     Indication: B-cell type acute leukaemia
     Dosage: UNK
     Route: 037
  3. VORICONAZOLE [Suspect]
     Active Substance: VORICONAZOLE
     Indication: Antifungal prophylaxis
     Dosage: UNK
     Route: 065
  4. FLUCONAZOLE [Suspect]
     Active Substance: FLUCONAZOLE
     Indication: Candida infection
     Dosage: UNK
     Route: 065
  5. VINCRISTINE [Suspect]
     Active Substance: VINCRISTINE
     Indication: B-cell type acute leukaemia
     Dosage: UNK
     Route: 065
  6. MITOXANTRONE [Suspect]
     Active Substance: MITOXANTRONE HYDROCHLORIDE
     Indication: B-cell type acute leukaemia
     Dosage: UNK
     Route: 065
  7. BLINATUMOMAB [Suspect]
     Active Substance: BLINATUMOMAB
     Indication: B-cell type acute leukaemia
     Dosage: UNK
     Route: 065
  8. MICAFUNGIN [Suspect]
     Active Substance: MICAFUNGIN SODIUM
     Indication: Antifungal prophylaxis
     Dosage: 100 MILLIGRAM, QD
     Route: 042
  9. MICAFUNGIN [Suspect]
     Active Substance: MICAFUNGIN SODIUM
     Dosage: UNK, THERAPY RESTARTED
     Route: 042
  10. AMPHOTERICIN B [Suspect]
     Active Substance: AMPHOTERICIN B
     Indication: Antifungal prophylaxis
     Dosage: 5 MILLIGRAM/KILOGRAM, QD
     Route: 042
  11. AMPHOTERICIN B [Suspect]
     Active Substance: AMPHOTERICIN B
     Dosage: UNK, THERAPY RESTARTED
     Route: 042
  12. ACYCLOVIR [Concomitant]
     Active Substance: ACYCLOVIR
     Indication: Product used for unknown indication
     Dosage: UNK
     Route: 065
  13. CEFEPIME [Concomitant]
     Active Substance: CEFEPIME HYDROCHLORIDE
     Indication: Cellulitis
     Dosage: UNK
     Route: 065
  14. VANCOMYCIN [Concomitant]
     Active Substance: VANCOMYCIN
     Indication: Cellulitis
     Dosage: UNK
     Route: 065

REACTIONS (2)
  - Candida infection [Unknown]
  - Drug ineffective [Unknown]
